FAERS Safety Report 4428717-3 (Version None)
Quarter: 2004Q3

REPORT INFORMATION
  Report Type: 
  Country: None (occurrence: None)
  Receive Date: 20040818
  Receipt Date: 20040202
  Transmission Date: 20050211
  Serious: No
  Sender: FDA-Public Use
  Company Number: US-BRISTOL-MYERS SQUIBB COMPANY-12493466

PATIENT
  Age: 57 Year
  Sex: Female
  Weight: 82 kg

DRUGS (4)
  1. TEQUIN [Suspect]
     Indication: SINUSITIS
     Dosage: INTERRUPTED AFTER TAKING THE FIRST DOSE UNTIL 29-JAN-2004
     Route: 048
     Dates: start: 20040122, end: 20040131
  2. PROZAC [Concomitant]
  3. CLARITIN [Concomitant]
     Dosage: DOSAGE FORM: TABLET
  4. NASALCROM [Concomitant]

REACTIONS (2)
  - DIZZINESS [None]
  - HEADACHE [None]
